FAERS Safety Report 4318780-2 (Version None)
Quarter: 2004Q1

REPORT INFORMATION
  Report Type: 
  Country: None (occurrence: None)
  Receive Date: 20040318
  Receipt Date: 20040317
  Transmission Date: 20041129
  Serious: Yes (Hospitalization)
  Sender: FDA-Public Use
  Company Number: US-GLAXOSMITHKLINE-A0503231A

PATIENT
  Age: 11 Year
  Sex: Female

DRUGS (1)
  1. PAXIL [Suspect]
     Route: 048

REACTIONS (4)
  - ANXIETY [None]
  - GRAND MAL CONVULSION [None]
  - HOSTILITY [None]
  - SUICIDAL IDEATION [None]
